FAERS Safety Report 16393319 (Version 1)
Quarter: 2019Q3

REPORT INFORMATION
  Report Type: Spontaneous
  Country: US (occurrence: US)
  Receive Date: 20190603
  Receipt Date: 20190603
  Transmission Date: 20191004
  Serious: No
  Sender: FDA-Public Use
  Company Number: None

PATIENT
  Age: 47 Year
  Sex: Male
  Weight: 96.75 kg

DRUGS (4)
  1. AMLOD/BENAZEPRIL 5-20MG CAP [Concomitant]
  2. AMLOD/BENAZEPRIL 5-20MG CAP AUR [Suspect]
     Active Substance: AMLODIPINE BESYLATE\BENAZEPRIL HYDROCHLORIDE
     Indication: HYPERTENSION
     Dosage: ?          QUANTITY:1 CAPSULE(S);?
     Route: 048
     Dates: start: 20190429, end: 20190531
  3. POTA CHLORIDE 10 MEQ CR TAB SA [Concomitant]
  4. CHLORTHALIDONE 25MG TAB SU [Concomitant]

REACTIONS (4)
  - Headache [None]
  - Product substitution issue [None]
  - Ear discomfort [None]
  - Blood pressure increased [None]

NARRATIVE: CASE EVENT DATE: 20190530
